FAERS Safety Report 8939897 (Version 3)
Quarter: 2013Q2

REPORT INFORMATION
  Report Type: Spontaneous
  Country: US (occurrence: US)
  Receive Date: 20121203
  Receipt Date: 20130528
  Transmission Date: 20140414
  Serious: Yes (Other)
  Sender: FDA-Public Use
  Company Number: US-PFIZER INC-2012301801

PATIENT
  Age: 48 Year
  Sex: Female
  Weight: 98.41 kg

DRUGS (4)
  1. LYRICA [Suspect]
     Indication: FIBROMYALGIA
     Dosage: 200 MG, 2X/DAY
     Route: 048
  2. NEURONTIN [Suspect]
     Indication: NEUROPATHY PERIPHERAL
     Dosage: UNK, 3X/DAY
     Route: 048
     Dates: start: 200909, end: 201301
  3. NEURONTIN [Suspect]
     Indication: BURNING SENSATION
  4. CYMBALTA [Concomitant]
     Indication: ARTHRALGIA
     Dosage: 50 MG, 2X/DAY

REACTIONS (4)
  - Spinal cord disorder [Unknown]
  - Spinal column stenosis [Unknown]
  - Memory impairment [Unknown]
  - Drug ineffective [Unknown]
